FAERS Safety Report 10695949 (Version 1)
Quarter: 2015Q1

REPORT INFORMATION
  Report Type: Spontaneous
  Country: US (occurrence: None)
  Receive Date: 20150106
  Receipt Date: 20150106
  Transmission Date: 20150721
  Serious: Yes (Other)
  Sender: FDA-Public Use
  Company Number: None

PATIENT
  Age: 60 Year
  Sex: Female
  Weight: 88.45 kg

DRUGS (1)
  1. ENOXAPARIN [Suspect]
     Active Substance: ENOXAPARIN
     Indication: CEREBROVASCULAR ACCIDENT
     Dosage: GIVEN INTO/UNDER THE SKIN
     Dates: start: 20141201, end: 20141231

REACTIONS (2)
  - Epistaxis [None]
  - Contusion [None]

NARRATIVE: CASE EVENT DATE: 20150104
